FAERS Safety Report 5448094-9 (Version None)
Quarter: 2007Q3

REPORT INFORMATION
  Report Type: 
  Country: None (occurrence: None)
  Receive Date: 20070801
  Receipt Date: 20070531
  Transmission Date: 20080115
  Serious: No
  Sender: FDA-Public Use
  Company Number: 2007-US-000225

PATIENT
  Age: 2 Year
  Sex: Female
  Weight: 7.1 kg

DRUGS (3)
  1. INCRELEX [Suspect]
     Indication: INSULIN-LIKE GROWTH FACTOR DECREASED
     Dosage: 0.28 MG, QD, SUBCUTANEOUS; 0.56 MG, QD, SUBCUTANEOUS; 0.84 MG, QD, SUBCUTANEOUS
     Route: 058
     Dates: start: 20070502, end: 20070508
  2. INCRELEX [Suspect]
     Indication: INSULIN-LIKE GROWTH FACTOR DECREASED
     Dosage: 0.28 MG, QD, SUBCUTANEOUS; 0.56 MG, QD, SUBCUTANEOUS; 0.84 MG, QD, SUBCUTANEOUS
     Route: 058
     Dates: start: 20070509, end: 20070515
  3. INCRELEX [Suspect]
     Indication: INSULIN-LIKE GROWTH FACTOR DECREASED
     Dosage: 0.28 MG, QD, SUBCUTANEOUS; 0.56 MG, QD, SUBCUTANEOUS; 0.84 MG, QD, SUBCUTANEOUS
     Route: 058
     Dates: start: 20070516

REACTIONS (1)
  - URTICARIA [None]
